FAERS Safety Report 11802219 (Version 1)
Quarter: 2015Q4

REPORT INFORMATION
  Report Type: Report from Study
  Country: JP (occurrence: JP)
  Receive Date: 20151204
  Receipt Date: 20151204
  Transmission Date: 20160305
  Serious: Yes (Death, Life-Threatening, Disabling)
  Sender: FDA-Public Use
  Company Number: JP-SA-THYM-1003420

PATIENT
  Age: 68 Year
  Sex: Male
  Weight: 58 kg

DRUGS (14)
  1. SOLU-CORTEF [Concomitant]
     Active Substance: HYDROCORTISONE SODIUM SUCCINATE
     Indication: PROPHYLAXIS
     Dates: start: 20120915, end: 20121006
  2. SAXIZON [Concomitant]
     Active Substance: HYDROCORTISONE SODIUM SUCCINATE
     Indication: MECHANICAL VENTILATION
     Dates: start: 20120925, end: 20120925
  3. HORIZON [Concomitant]
     Active Substance: DIAZEPAM
     Indication: MECHANICAL VENTILATION
     Dates: start: 20120924, end: 20120925
  4. TAKEPRON [Concomitant]
     Active Substance: LANSOPRAZOLE
     Indication: PROPHYLAXIS
     Dates: start: 20120914, end: 20121002
  5. OMEPRAL [Concomitant]
     Active Substance: OMEPRAZOLE
     Indication: INFECTION PROPHYLAXIS
     Dosage: 10 MG, QD
     Route: 065
     Dates: start: 20120618, end: 20120913
  6. G-CSF [Concomitant]
     Active Substance: GRANULOCYTE COLONY-STIMULATING FACTOR NOS
     Indication: APLASTIC ANAEMIA
     Dates: start: 20120615, end: 20120911
  7. GRAN [Concomitant]
     Active Substance: FILGRASTIM
     Indication: APLASTIC ANAEMIA
     Dates: start: 20120914, end: 20121004
  8. MUSCULAX [Concomitant]
     Active Substance: VECURONIUM BROMIDE
     Indication: MECHANICAL VENTILATION
     Dates: start: 20120914, end: 20120916
  9. SOLU-MEDROL [Concomitant]
     Active Substance: METHYLPREDNISOLONE SODIUM SUCCINATE
     Indication: PROPHYLAXIS
     Dosage: 125 MG, QD
     Route: 041
     Dates: start: 20120913, end: 20120913
  10. DIFLUCAN [Concomitant]
     Active Substance: FLUCONAZOLE
     Indication: INFECTION PROPHYLAXIS
     Dosage: 200 MG, QD
     Dates: start: 20120705, end: 20120913
  11. BAKTAR [Concomitant]
     Active Substance: SULFAMETHOXAZOLE\TRIMETHOPRIM
     Indication: INFECTION PROPHYLAXIS
     Dosage: UNK DF, QD
     Route: 065
     Dates: start: 20120705, end: 20120913
  12. DIPRIVAN [Concomitant]
     Active Substance: PROPOFOL
     Indication: MECHANICAL VENTILATION
     Dates: start: 20120914, end: 20120916
  13. THYMOGLOBULINE [Suspect]
     Active Substance: LAPINE T-LYMPHOCYTE IMMUNE GLOBULIN
     Indication: APLASTIC ANAEMIA
     Dosage: 200 MG, QD
     Route: 041
     Dates: start: 20120913, end: 20120913
  14. PRIMOBOLAN-DEPOT [Concomitant]
     Active Substance: METHENOLONE ENANTHATE
     Indication: APLASTIC ANAEMIA
     Dosage: 10 MG, BID
     Route: 065
     Dates: start: 20120511, end: 20120913

REACTIONS (8)
  - Disseminated intravascular coagulation [Recovered/Resolved]
  - Acute kidney injury [Not Recovered/Not Resolved]
  - Ventricular flutter [Recovered/Resolved with Sequelae]
  - Postresuscitation encephalopathy [Not Recovered/Not Resolved]
  - Pyrexia [Recovered/Resolved]
  - Chills [Recovered/Resolved]
  - Haemorrhage [Fatal]
  - Infection [Not Recovered/Not Resolved]

NARRATIVE: CASE EVENT DATE: 20120913
